FAERS Safety Report 10047128 (Version 1)
Quarter: 2014Q1

REPORT INFORMATION
  Report Type: Spontaneous
  Country: US (occurrence: US)
  Receive Date: 20140331
  Receipt Date: 20140331
  Transmission Date: 20141002
  Serious: Yes (Hospitalization)
  Sender: FDA-Public Use
  Company Number: US-MYLANLABS-2013S1010735

PATIENT
  Age: 54 Year
  Sex: Female
  Weight: 72.12 kg

DRUGS (6)
  1. FENTANYL TRANSDERMAL SYSTEM [Suspect]
     Indication: CANCER PAIN
     Dosage: Q72HR
     Route: 062
  2. LEXAPRO [Concomitant]
     Indication: DEPRESSION
  3. OMEPRAZOLE [Concomitant]
     Indication: GASTROOESOPHAGEAL REFLUX DISEASE
  4. LASIX [Concomitant]
     Indication: FLUID RETENTION
  5. STOOL SOFTENER [Concomitant]
     Indication: CONSTIPATION
  6. OXYCODONE [Concomitant]
     Indication: PAIN

REACTIONS (2)
  - Drug ineffective [Recovered/Resolved]
  - Cancer pain [Recovered/Resolved]
